FAERS Safety Report 4625349-9 (Version None)
Quarter: 2005Q2

REPORT INFORMATION
  Report Type: 
  Country: None (occurrence: None)
  Receive Date: 20050401
  Receipt Date: 20050310
  Transmission Date: 20051028
  Serious: Yes (Death)
  Sender: FDA-Public Use
  Company Number: GB-GLAXOSMITHKLINE-B0375352A

PATIENT
  Sex: Male

DRUGS (5)
  1. LAMOTRIGINE [Suspect]
     Indication: EPILEPSY
     Route: 048
     Dates: end: 20011231
  2. PAROXETINE HCL [Suspect]
  3. METHADONE HCL [Suspect]
  4. MORPHINE [Suspect]
  5. BENZODIAZEPINE [Suspect]

REACTIONS (1)
  - DRUG TOXICITY [None]
